FAERS Safety Report 11699171 (Version 2)
Quarter: 2015Q4

REPORT INFORMATION
  Report Type: Spontaneous
  Country: CH (occurrence: CH)
  Receive Date: 20151104
  Receipt Date: 20151104
  Transmission Date: 20160304
  Serious: Yes (Other)
  Sender: FDA-Public Use
  Company Number: CH-ANTARES PHARMA, INC.-2015-LIT-ME-0099

PATIENT

DRUGS (1)
  1. METHOTREXATE [Suspect]
     Active Substance: METHOTREXATE
     Indication: CHONDROCALCINOSIS PYROPHOSPHATE
     Dosage: 15 MG, QWK

REACTIONS (1)
  - Bicytopenia [Recovered/Resolved]
